FAERS Safety Report 5815810-3 (Version None)
Quarter: 2008Q3

REPORT INFORMATION
  Report Type: 
  Country: None (occurrence: None)
  Receive Date: 20080721
  Receipt Date: 20080715
  Transmission Date: 20090109
  Serious: Yes (Hospitalization, Other)
  Sender: FDA-Public Use
  Company Number: FR-JNJFOC-20080702184

PATIENT
  Age: 23 Year
  Sex: Male

DRUGS (5)
  1. RISPERDAL [Suspect]
     Indication: DRUG USE FOR UNKNOWN INDICATION
     Route: 048
  2. RISPERDAL CONSTA [Suspect]
     Route: 030
  3. RISPERDAL CONSTA [Suspect]
     Indication: DRUG USE FOR UNKNOWN INDICATION
     Route: 030
  4. TERALITHE [Concomitant]
     Route: 065
  5. ATARAX [Concomitant]
     Route: 065

REACTIONS (3)
  - PSYCHOSOMATIC DISEASE [None]
  - URINARY RETENTION [None]
  - URINARY TRACT INFECTION [None]
